FAERS Safety Report 6600345-0 (Version None)
Quarter: 2010Q1

REPORT INFORMATION
  Report Type: 
  Country: None (occurrence: None)
  Receive Date: 20100217
  Receipt Date: 20100128
  Transmission Date: 20100710
  Serious: Yes (Disabling)
  Sender: FDA-Public Use
  Company Number: 2010JP000339

PATIENT
  Age: 64 Year
  Sex: Female
  Weight: 65.5 kg

DRUGS (6)
  1. PROGRAF [Suspect]
     Indication: RHEUMATOID ARTHRITIS
     Dosage: 2 MG, D, ORAL
     Route: 048
     Dates: start: 20090501
  2. RHEUMATREX [Suspect]
     Dosage: 4 MG, WEEKLY, 6 MG, WEEKLY, 8 MG, WEEKLY
     Dates: start: 20081001, end: 20081101
  3. RHEUMATREX [Suspect]
     Dosage: 4 MG, WEEKLY, 6 MG, WEEKLY, 8 MG, WEEKLY
     Dates: start: 20081101, end: 20081201
  4. RHEUMATREX [Suspect]
     Dosage: 4 MG, WEEKLY, 6 MG, WEEKLY, 8 MG, WEEKLY
     Dates: start: 20081201, end: 20100103
  5. MOVER (ACTARIT) [Concomitant]
  6. RIMATIL (BUCILLAMINE) [Concomitant]

REACTIONS (2)
  - OSTEOMYELITIS [None]
  - OSTEONECROSIS [None]
